FAERS Safety Report 8896351 (Version 1)
Quarter: 2012Q4

REPORT INFORMATION
  Report Type: Spontaneous
  Country: US (occurrence: None)
  Receive Date: 20121107
  Receipt Date: 20121107
  Transmission Date: 20130627
  Serious: Yes (Life-Threatening, Hospitalization, Disabling)
  Sender: FDA-Public Use
  Company Number: None

PATIENT
  Age: 20 Year
  Sex: Female
  Weight: 63.5 kg

DRUGS (1)
  1. CYCLESSA [Suspect]
     Indication: RESTLESS LEG SYNDROME
     Dosage: daily po
     Route: 048

REACTIONS (4)
  - Thrombosis [None]
  - Pulmonary thrombosis [None]
  - Intracardiac thrombus [None]
  - Disease complication [None]
